FAERS Safety Report 8912124 (Version 2)
Quarter: 2012Q4

REPORT INFORMATION
  Report Type: Report from Study
  Country: US (occurrence: US)
  Receive Date: 20121115
  Receipt Date: 20121220
  Transmission Date: 20130627
  Serious: Yes (Death)
  Sender: FDA-Public Use
  Company Number: US-ABBOTT-12P-163-1008173-00

PATIENT
  Age: 67 Year
  Sex: Female

DRUGS (3)
  1. HUMIRA [Suspect]
     Indication: PSORIASIS
     Route: 058
     Dates: start: 20080319, end: 2011
  2. DILTIAZEM [Concomitant]
     Indication: HYPERTENSION
     Dates: start: 2007
  3. CLOBEX [Concomitant]
     Indication: PSORIASIS
     Dosage: 2 weeks on 2 weeks off cycle prn flare-up
     Dates: start: 20070214

REACTIONS (1)
  - Cardiac arrest [Fatal]
